FAERS Safety Report 12413636 (Version 2)
Quarter: 2016Q2

REPORT INFORMATION
  Report Type: Report from Study
  Country: US (occurrence: US)
  Receive Date: 20160527
  Receipt Date: 20160610
  Transmission Date: 20160815
  Serious: Yes (Hospitalization)
  Sender: FDA-Public Use
  Company Number: US-ACTELION-A-NJ2016-135156

PATIENT
  Age: 60 Year
  Sex: Female

DRUGS (1)
  1. OPSUMIT [Suspect]
     Active Substance: MACITENTAN
     Indication: PULMONARY ARTERIAL HYPERTENSION
     Dosage: 10 MG, QD
     Route: 048
     Dates: start: 20160404

REACTIONS (10)
  - Pneumonia [Unknown]
  - Pyrexia [Unknown]
  - Oxygen saturation decreased [Unknown]
  - Nasopharyngitis [Unknown]
  - Back pain [Unknown]
  - Disturbance in sexual arousal [Unknown]
  - Fall [Unknown]
  - Dyspnoea [Unknown]
  - Choking sensation [Unknown]
  - Haemoptysis [Unknown]

NARRATIVE: CASE EVENT DATE: 201604
